FAERS Safety Report 25001541 (Version 1)
Quarter: 2025Q1

REPORT INFORMATION
  Report Type: Spontaneous
  Country: CA (occurrence: CA)
  Receive Date: 20250223
  Receipt Date: 20250223
  Transmission Date: 20250408
  Serious: Yes (Death, Other)
  Sender: BRISTOL-MYERS SQUIBB COMPANY
  Company Number: CA-BRISTOL-MYERS SQUIBB COMPANY-2025-027074

PATIENT
  Age: 43 Year
  Sex: Female
  Weight: 68 kg

DRUGS (97)
  1. TRIAMCINOLONE ACETONIDE [Suspect]
     Active Substance: TRIAMCINOLONE ACETONIDE
     Indication: Rheumatoid arthritis
  2. ALENDRONIC ACID [Concomitant]
     Active Substance: ALENDRONIC ACID
     Indication: Rheumatoid arthritis
  3. ANAKINRA [Concomitant]
     Active Substance: ANAKINRA
     Indication: Product used for unknown indication
  4. ANAKINRA [Concomitant]
     Active Substance: ANAKINRA
  5. ANAKINRA [Concomitant]
     Active Substance: ANAKINRA
     Route: 048
  6. ANAKINRA [Concomitant]
     Active Substance: ANAKINRA
     Route: 048
  7. ANAKINRA [Concomitant]
     Active Substance: ANAKINRA
  8. ANAKINRA [Concomitant]
     Active Substance: ANAKINRA
  9. LEFLUNOMIDE [Concomitant]
     Active Substance: LEFLUNOMIDE
     Indication: Rheumatoid arthritis
  10. LEFLUNOMIDE [Concomitant]
     Active Substance: LEFLUNOMIDE
  11. LEFLUNOMIDE [Concomitant]
     Active Substance: LEFLUNOMIDE
  12. CETIRIZINE [Concomitant]
     Active Substance: CETIRIZINE HYDROCHLORIDE
     Indication: Product used for unknown indication
  13. CETIRIZINE [Concomitant]
     Active Substance: CETIRIZINE HYDROCHLORIDE
     Route: 048
  14. CETIRIZINE [Concomitant]
     Active Substance: CETIRIZINE HYDROCHLORIDE
  15. CETIRIZINE [Concomitant]
     Active Substance: CETIRIZINE HYDROCHLORIDE
     Route: 048
  16. CETIRIZINE [Concomitant]
     Active Substance: CETIRIZINE HYDROCHLORIDE
  17. CETIRIZINE HYDROCHLORIDE [Concomitant]
     Active Substance: CETIRIZINE HYDROCHLORIDE
     Indication: Rheumatoid arthritis
     Route: 058
  18. CORTISONE (HYDROCORTISONE) [Concomitant]
     Active Substance: HYDROCORTISONE
     Indication: Rheumatoid arthritis
     Route: 016
  19. COSENTYX [Concomitant]
     Active Substance: SECUKINUMAB
     Indication: Psoriatic arthropathy
  20. DEXAMETHASONE [Concomitant]
     Active Substance: DEXAMETHASONE
     Indication: Product used for unknown indication
     Route: 048
  21. DEXAMETHASONE [Concomitant]
     Active Substance: DEXAMETHASONE
     Route: 016
  22. DEXAMETHASONE [Concomitant]
     Active Substance: DEXAMETHASONE
  23. DEXAMETHASONE [Concomitant]
     Active Substance: DEXAMETHASONE
     Route: 048
  24. DEXAMETHASONE [Concomitant]
     Active Substance: DEXAMETHASONE
  25. DICLOFENAC [Concomitant]
     Active Substance: DICLOFENAC
     Indication: Product used for unknown indication
  26. DICLOFENAC [Concomitant]
     Active Substance: DICLOFENAC
  27. DICLOFENAC [Concomitant]
     Active Substance: DICLOFENAC
  28. DICLOFENAC [Concomitant]
     Active Substance: DICLOFENAC
  29. DICLOFENAC [Concomitant]
     Active Substance: DICLOFENAC
  30. DICLOFENAC DIETHYLAMINE [Concomitant]
     Active Substance: DICLOFENAC DIETHYLAMINE
     Indication: Product used for unknown indication
     Route: 048
  31. DICLOFENAC DIETHYLAMINE [Concomitant]
     Active Substance: DICLOFENAC DIETHYLAMINE
     Route: 003
  32. DICLOFENAC DIETHYLAMINE [Concomitant]
     Active Substance: DICLOFENAC DIETHYLAMINE
  33. DICLOFENAC DIETHYLAMINE [Concomitant]
     Active Substance: DICLOFENAC DIETHYLAMINE
  34. DICLOFENAC DIETHYLAMINE [Concomitant]
     Active Substance: DICLOFENAC DIETHYLAMINE
     Route: 048
  35. DICLOFENAC DIETHYLAMINE [Concomitant]
     Active Substance: DICLOFENAC DIETHYLAMINE
  36. DICLOFENAC POTASSIUM [Concomitant]
     Active Substance: DICLOFENAC POTASSIUM
     Indication: Product used for unknown indication
     Route: 047
  37. ERELZI [Concomitant]
     Active Substance: ETANERCEPT-SZZS
     Indication: Rheumatoid arthritis
     Route: 058
  38. ERELZI [Concomitant]
     Active Substance: ETANERCEPT-SZZS
  39. ERELZI [Concomitant]
     Active Substance: ETANERCEPT-SZZS
  40. FOLIC ACID [Concomitant]
     Active Substance: FOLIC ACID
     Indication: Rheumatoid arthritis
     Route: 048
  41. FOLIC ACID [Concomitant]
     Active Substance: FOLIC ACID
  42. FOLIC ACID [Concomitant]
     Active Substance: FOLIC ACID
  43. FOLIC ACID [Concomitant]
     Active Substance: FOLIC ACID
  44. FOLIC ACID [Concomitant]
     Active Substance: FOLIC ACID
     Route: 048
  45. HYRIMOZ [Concomitant]
     Active Substance: ADALIMUMAB-ADAZ
     Indication: Rheumatoid arthritis
     Route: 058
  46. HYRIMOZ [Concomitant]
     Active Substance: ADALIMUMAB-ADAZ
     Route: 058
  47. HUMAN IMMUNOGLOBULIN G [Concomitant]
     Active Substance: HUMAN IMMUNOGLOBULIN G
     Indication: Product used for unknown indication
     Route: 058
  48. HUMAN IMMUNOGLOBULIN G [Concomitant]
     Active Substance: HUMAN IMMUNOGLOBULIN G
     Route: 058
  49. HUMAN IMMUNOGLOBULIN G [Concomitant]
     Active Substance: HUMAN IMMUNOGLOBULIN G
     Route: 058
  50. HUMAN IMMUNOGLOBULIN G [Concomitant]
     Active Substance: HUMAN IMMUNOGLOBULIN G
     Route: 058
  51. HUMAN IMMUNOGLOBULIN G [Concomitant]
     Active Substance: HUMAN IMMUNOGLOBULIN G
  52. HUMAN IMMUNOGLOBULIN G [Concomitant]
     Active Substance: HUMAN IMMUNOGLOBULIN G
     Route: 048
  53. LEVOCETIRIZINE HYDROCHLORIDE [Concomitant]
     Active Substance: LEVOCETIRIZINE HYDROCHLORIDE
     Indication: Product used for unknown indication
     Route: 042
  54. LEVOCETIRIZINE HYDROCHLORIDE [Concomitant]
     Active Substance: LEVOCETIRIZINE HYDROCHLORIDE
     Route: 042
  55. LEVOCETIRIZINE HYDROCHLORIDE [Concomitant]
     Active Substance: LEVOCETIRIZINE HYDROCHLORIDE
     Route: 058
  56. LEVOCETIRIZINE HYDROCHLORIDE [Concomitant]
     Active Substance: LEVOCETIRIZINE HYDROCHLORIDE
     Route: 041
  57. LEVOCETIRIZINE HYDROCHLORIDE [Concomitant]
     Active Substance: LEVOCETIRIZINE HYDROCHLORIDE
     Route: 058
  58. LYRICA [Concomitant]
     Active Substance: PREGABALIN
     Indication: Product used for unknown indication
  59. LYRICA [Concomitant]
     Active Substance: PREGABALIN
  60. METHOTREXATE [Concomitant]
     Active Substance: METHOTREXATE
     Indication: Rheumatoid arthritis
     Route: 048
  61. METHOTREXATE [Concomitant]
     Active Substance: METHOTREXATE
     Route: 005
  62. METHOTREXATE [Concomitant]
     Active Substance: METHOTREXATE
  63. METHOTREXATE [Concomitant]
     Active Substance: METHOTREXATE
  64. METHOTREXATE [Concomitant]
     Active Substance: METHOTREXATE
  65. METHOTREXATE [Concomitant]
     Active Substance: METHOTREXATE
     Route: 058
  66. METHOTREXATE [Concomitant]
     Active Substance: METHOTREXATE
  67. METHOTREXATE [Concomitant]
     Active Substance: METHOTREXATE
     Route: 058
  68. METHOTREXATE [Concomitant]
     Active Substance: METHOTREXATE
  69. METHOTREXATE [Concomitant]
     Active Substance: METHOTREXATE
     Route: 058
  70. METHOTREXATE [Concomitant]
     Active Substance: METHOTREXATE
  71. METHOTREXATE [Concomitant]
     Active Substance: METHOTREXATE
  72. OXYCODONE [Concomitant]
     Active Substance: OXYCODONE
     Indication: Product used for unknown indication
     Route: 003
  73. OXYCODONE [Concomitant]
     Active Substance: OXYCODONE
     Route: 058
  74. OXYCODONE [Concomitant]
     Active Substance: OXYCODONE
     Route: 048
  75. OXYCODONE [Concomitant]
     Active Substance: OXYCODONE
  76. OXYCODONE [Concomitant]
     Active Substance: OXYCODONE
  77. OXYCODONE [Concomitant]
     Active Substance: OXYCODONE
     Route: 048
  78. OXYCODONE [Concomitant]
     Active Substance: OXYCODONE
     Route: 048
  79. OXYCODONE [Concomitant]
     Active Substance: OXYCODONE
     Route: 058
  80. OXYCODONE [Concomitant]
     Active Substance: OXYCODONE
     Route: 013
  81. OXYCODONE [Concomitant]
     Active Substance: OXYCODONE
  82. OXYCODONE [Concomitant]
     Active Substance: OXYCODONE
     Route: 048
  83. OXYCODONE [Concomitant]
     Active Substance: OXYCODONE
     Route: 048
  84. OXYCODONE [Concomitant]
     Active Substance: OXYCODONE
     Route: 048
  85. RITUXIMAB [Concomitant]
     Active Substance: RITUXIMAB
     Indication: Rheumatoid arthritis
  86. RITUXIMAB [Concomitant]
     Active Substance: RITUXIMAB
     Route: 048
  87. LEFLUNOMIDE [Concomitant]
     Active Substance: LEFLUNOMIDE
     Indication: Rheumatoid arthritis
     Route: 048
  88. LEFLUNOMIDE [Concomitant]
     Active Substance: LEFLUNOMIDE
  89. LEFLUNOMIDE [Concomitant]
     Active Substance: LEFLUNOMIDE
     Route: 048
  90. LEFLUNOMIDE [Concomitant]
     Active Substance: LEFLUNOMIDE
     Route: 048
  91. LEFLUNOMIDE [Concomitant]
     Active Substance: LEFLUNOMIDE
     Route: 048
  92. LEFLUNOMIDE [Concomitant]
     Active Substance: LEFLUNOMIDE
  93. MYCOPHENOLATE MOFETIL [Concomitant]
     Active Substance: MYCOPHENOLATE MOFETIL
     Indication: Psoriatic arthropathy
     Route: 048
  94. MYCOPHENOLATE MOFETIL [Concomitant]
     Active Substance: MYCOPHENOLATE MOFETIL
  95. VITAMIN D3 [Concomitant]
     Active Substance: CHOLECALCIFEROL
     Indication: Product used for unknown indication
  96. DICLOFENAC [Concomitant]
     Active Substance: DICLOFENAC
     Indication: Product used for unknown indication
     Route: 047
  97. DICLOFENAC [Concomitant]
     Active Substance: DICLOFENAC

REACTIONS (1)
  - Death [Fatal]
